FAERS Safety Report 8139490-X (Version None)
Quarter: 2012Q1

REPORT INFORMATION
  Report Type: 
  Country: None (occurrence: None)
  Receive Date: 20120215
  Receipt Date: 20120209
  Transmission Date: 20120608
  Serious: Yes (Hospitalization, Other)
  Sender: FDA-Public Use
  Company Number: DE-ABBOTT-11P-062-0880608-00

PATIENT
  Sex: Female

DRUGS (4)
  1. HUMIRA [Suspect]
     Indication: CROHN'S DISEASE
     Route: 058
     Dates: start: 20111025, end: 20120109
  2. EXEMESTANE [Concomitant]
     Indication: PRODUCT USED FOR UNKNOWN INDICATION
  3. OMEPRAZOLE [Concomitant]
     Indication: PRODUCT USED FOR UNKNOWN INDICATION
  4. ANTIHYPERTENSIVES [Concomitant]

REACTIONS (13)
  - NAUSEA [None]
  - ABDOMINAL PAIN [None]
  - FATIGUE [None]
  - ABSCESS [None]
  - PYREXIA [None]
  - CHILLS [None]
  - DRUG INEFFECTIVE [None]
  - FISTULA [None]
  - INFLAMMATORY MARKER INCREASED [None]
  - DIARRHOEA [None]
  - HEADACHE [None]
  - WEIGHT DECREASED [None]
  - CROHN'S DISEASE [None]
